FAERS Safety Report 4690783-8 (Version None)
Quarter: 2005Q2

REPORT INFORMATION
  Report Type: 
  Country: None (occurrence: None)
  Receive Date: 20050615
  Receipt Date: 20050504
  Transmission Date: 20051028
  Serious: Yes (Other)
  Sender: FDA-Public Use
  Company Number: US-JNJFOC-20050502078

PATIENT
  Sex: Male
  Weight: 12.25 kg

DRUGS (3)
  1. CHILDREN'S MOTRIN COLD [Suspect]
  2. CHILDREN'S MOTRIN COLD [Suspect]
     Dosage: 1 TSP, PM
  3. TYLENOL [Concomitant]

REACTIONS (3)
  - ABNORMAL BEHAVIOUR [None]
  - DEPRESSED LEVEL OF CONSCIOUSNESS [None]
  - MALAISE [None]
